FAERS Safety Report 20598281 (Version 5)
Quarter: 2025Q1

REPORT INFORMATION
  Report Type: Spontaneous
  Country: US (occurrence: US)
  Receive Date: 20220315
  Receipt Date: 20250310
  Transmission Date: 20250408
  Serious: No
  Sender: PFIZER
  Company Number: US-PFIZER INC-202200365906

PATIENT
  Age: 54 Year
  Sex: Female

DRUGS (1)
  1. IBRANCE [Suspect]
     Active Substance: PALBOCICLIB
     Route: 048
     Dates: start: 20220301

REACTIONS (8)
  - Nausea [Recovered/Resolved]
  - Visual acuity reduced [Unknown]
  - Visual impairment [Unknown]
  - Alopecia [Unknown]
  - Fatigue [Unknown]
  - Pain of skin [Unknown]
  - Disturbance in attention [Unknown]
  - Oral pain [Unknown]

NARRATIVE: CASE EVENT DATE: 20220101
